FAERS Safety Report 4869195-X (Version None)
Quarter: 2005Q4

REPORT INFORMATION
  Report Type: 
  Country: None (occurrence: None)
  Receive Date: 20051230
  Receipt Date: 20051221
  Transmission Date: 20060501
  Serious: Yes (Death, Hospitalization)
  Sender: FDA-Public Use
  Company Number: PHBS2005DE18856

PATIENT
  Age: 28 Year
  Sex: Female

DRUGS (7)
  1. CYCLOSPORINE [Suspect]
     Indication: LUNG TRANSPLANT
  2. MYCOPHENOLATE MOFETIL [Suspect]
     Indication: LUNG TRANSPLANT
     Dosage: 3 G/DAY
  3. PREDNISONE TAB [Suspect]
     Dosage: 0.5 MG/KG/D
  4. PREDNISONE TAB [Suspect]
     Dosage: 10 MG/DAY
  5. VALGANCICLOVIR [Concomitant]
     Dosage: 450 MG/DAY
  6. ITRACONAZOLE [Concomitant]
     Dosage: 200 MG/D
  7. COTRIM [Concomitant]
     Dosage: 1.92 G, QW2

REACTIONS (17)
  - ASPERGILLOSIS [None]
  - C-REACTIVE PROTEIN INCREASED [None]
  - CARDIAC FAILURE [None]
  - CARDIAC VALVE VEGETATION [None]
  - CEREBRAL HAEMORRHAGE [None]
  - CEREBROVASCULAR ACCIDENT [None]
  - EYE INFECTION FUNGAL [None]
  - FUNGAL ENDOCARDITIS [None]
  - HEADACHE [None]
  - HEMIPLEGIA [None]
  - LOCALISED INFECTION [None]
  - LOSS OF CONSCIOUSNESS [None]
  - LUNG INFILTRATION [None]
  - MITRAL VALVE INCOMPETENCE [None]
  - MITRAL VALVE REPLACEMENT [None]
  - RETINAL INFILTRATES [None]
  - VISION BLURRED [None]
